FAERS Safety Report 8282149-9 (Version None)
Quarter: 2012Q2

REPORT INFORMATION
  Report Type: 
  Country: None (occurrence: None)
  Receive Date: 20120413
  Receipt Date: 20120409
  Transmission Date: 20120825
  Serious: Yes (Hospitalization)
  Sender: FDA-Public Use
  Company Number: PHEH2012US007682

PATIENT
  Sex: Female

DRUGS (21)
  1. TASIGNA [Suspect]
     Indication: ACUTE LYMPHOCYTIC LEUKAEMIA
  2. ACYCLOVIR [Concomitant]
  3. LEVOTHYROXINE SODIUM [Concomitant]
  4. TRAZODONE HCL [Concomitant]
  5. CHLORHEXIDINE GLUCONATE [Concomitant]
  6. MIRALAX [Concomitant]
  7. OXYCODONE HCL [Concomitant]
  8. CALCIUM WITH VITAMIN D [Concomitant]
  9. SIMVASTATIN [Concomitant]
  10. LORAZEPAM [Concomitant]
  11. GLYBURIDE [Concomitant]
  12. LANTUS [Concomitant]
  13. LAMOTRGINE [Concomitant]
  14. CEFEPIME [Concomitant]
  15. CYCLOSPORINE [Concomitant]
  16. MAGNESIUM OXIDE [Concomitant]
  17. OLMESARTAN MEDOXOMIL [Concomitant]
  18. DOCUSATE [Concomitant]
  19. INSULIN [Concomitant]
  20. FLUCONAZOLE [Concomitant]
  21. SORBITOL 50PC INJ [Concomitant]

REACTIONS (3)
  - RASH [None]
  - FEBRILE NEUTROPENIA [None]
  - STAPHYLOCOCCAL INFECTION [None]
